FAERS Safety Report 7789194-8 (Version None)
Quarter: 2011Q3

REPORT INFORMATION
  Report Type: 
  Country: None (occurrence: None)
  Receive Date: 20110930
  Receipt Date: 20110926
  Transmission Date: 20111222
  Serious: Yes (Other)
  Sender: FDA-Public Use
  Company Number: US-PFIZER INC-2011228939

PATIENT
  Sex: Female
  Weight: 91.2 kg

DRUGS (2)
  1. DEPO-SUBQ PROVERA 104 [Suspect]
     Dosage: 104 MG, EVERY 3 MONTHS
     Dates: start: 20110405
  2. ACETYLSALICYLIC ACID [Concomitant]
     Indication: ANTIPHOSPHOLIPID SYNDROME
     Dosage: UNK

REACTIONS (3)
  - URTICARIA [None]
  - SWELLING [None]
  - RASH [None]
